FAERS Safety Report 6298780-6 (Version None)
Quarter: 2009Q3

REPORT INFORMATION
  Report Type: 
  Country: None (occurrence: None)
  Receive Date: 20090806
  Receipt Date: 20070911
  Transmission Date: 20100115
  Serious: Yes (Hospitalization, Other)
  Sender: FDA-Public Use
  Company Number: US-ASTRAZENECA-2007UW09227

PATIENT
  Age: 57 Year
  Sex: Female
  Weight: 98 kg

DRUGS (14)
  1. SEROQUEL [Suspect]
     Indication: BIPOLAR DISORDER
     Route: 048
     Dates: start: 20010101
  2. SEROQUEL [Suspect]
     Indication: DEPRESSION
     Route: 048
     Dates: start: 20010101
  3. SEROQUEL [Suspect]
     Dosage: 200MG -800 MG (FLUCTUATING)
     Route: 048
     Dates: start: 20010627
  4. SEROQUEL [Suspect]
     Dosage: 200MG -800 MG (FLUCTUATING)
     Route: 048
     Dates: start: 20010627
  5. LEXAPRO [Concomitant]
     Route: 048
     Dates: start: 20061206
  6. HYDROCODONE BITARTRATE + ACETAMINOPHEN [Concomitant]
     Dosage: 5-500MG
     Dates: start: 20050811
  7. IMITREX [Concomitant]
     Indication: MIGRAINE
     Dosage: 50 MG, THREE TO FOUR TIMES PER WEEK
     Dates: start: 20001107
  8. ATIVAN [Concomitant]
     Indication: ANXIETY DISORDER
     Dosage: 0.5 MG - 5 MG (FLUCTUATING)
     Dates: start: 20001107
  9. TOPROL-XL [Concomitant]
     Indication: HYPERTENSION
     Dosage: 25MG -200MG (FLUCTUATING)
     Route: 048
     Dates: start: 20050907
  10. SYNTHROID [Concomitant]
     Indication: HYPOTHYROIDISM
     Dosage: 100 MCG, QD. 4-5 TABS QHS
     Route: 048
     Dates: start: 20020628
  11. SINGULAIR [Concomitant]
     Route: 048
     Dates: start: 20050907
  12. LIPITOR [Concomitant]
     Dates: start: 20050115
  13. LISINOPRIL [Concomitant]
     Dosage: 5MG -10MG
     Dates: start: 20051010
  14. TOPAMAX [Concomitant]
     Dates: start: 20051130

REACTIONS (5)
  - CHEST PAIN [None]
  - DIABETES MELLITUS [None]
  - DIABETIC NEPHROPATHY [None]
  - DIABETIC NEUROPATHY [None]
  - TYPE 2 DIABETES MELLITUS [None]
